FAERS Safety Report 5037501-1 (Version None)
Quarter: 2006Q2

REPORT INFORMATION
  Report Type: 
  Country: None (occurrence: None)
  Receive Date: 20060609
  Receipt Date: 20060228
  Transmission Date: 20061013
  Serious: Yes (Life-Threatening)
  Sender: FDA-Public Use
  Company Number: 035

PATIENT
  Sex: Female
  Weight: 72.5755 kg

DRUGS (13)
  1. FAZACLO ODT [Suspect]
     Indication: SCHIZOPHRENIA
     Dosage: 200 MG PO DAILY
     Route: 048
     Dates: start: 20060118, end: 20060223
  2. AMANTADINE HCL [Concomitant]
  3. NORVASC [Concomitant]
  4. ASPIRIN [Concomitant]
  5. COGENTIN [Concomitant]
  6. DDAVP [Concomitant]
  7. DEPAKOTE ER [Concomitant]
  8. HALDOL [Concomitant]
  9. LITHIUM CARBONATE [Concomitant]
  10. REMERON [Concomitant]
  11. MILK OF MAGNESIA TAB [Concomitant]
  12. ZOCOR [Concomitant]
  13. ZELNORM [Concomitant]

REACTIONS (1)
  - MYOCARDITIS [None]
